FAERS Safety Report 7227739-7 (Version None)
Quarter: 2011Q1

REPORT INFORMATION
  Report Type: 
  Country: None (occurrence: None)
  Receive Date: 20110114
  Receipt Date: 20110104
  Transmission Date: 20110831
  Serious: Yes (Other)
  Sender: FDA-Public Use
  Company Number: US-ACTELION-A-NJ2010-42822

PATIENT

DRUGS (2)
  1. BOSENTAN TABLET 62.5 MG US [Suspect]
     Indication: PULMONARY ARTERIAL HYPERTENSION
     Dosage: 62.5 MG, BID
     Route: 048
     Dates: start: 20101210, end: 20101217
  2. COUMADIN [Concomitant]

REACTIONS (6)
  - FLUID RETENTION [None]
  - OEDEMA PERIPHERAL [None]
  - DIZZINESS [None]
  - COUGH [None]
  - ABDOMINAL DISCOMFORT [None]
  - DECREASED APPETITE [None]
